FAERS Safety Report 4323221-5 (Version None)
Quarter: 2004Q1

REPORT INFORMATION
  Report Type: 
  Country: None (occurrence: None)
  Receive Date: 20040322
  Receipt Date: 20040308
  Transmission Date: 20041129
  Serious: Yes (Hospitalization)
  Sender: FDA-Public Use
  Company Number: 2004002729

PATIENT
  Age: 54 Year
  Sex: Female
  Weight: 82 kg

DRUGS (3)
  1. NEURONTIN [Suspect]
     Indication: DIABETIC NEUROPATHY
     Dosage: 1200 MG (SIX TIMES A DAY), ORAL
     Route: 048
     Dates: start: 20031105
  2. LANSOPRAZOLE [Concomitant]
  3. LOSARTAN POTASSIUM (LOSARTAN POTASSIUM) [Concomitant]

REACTIONS (4)
  - HUNGER [None]
  - HYPOGLYCAEMIA UNAWARENESS [None]
  - PARAESTHESIA [None]
  - TREMOR [None]
